FAERS Safety Report 17969696 (Version 1)
Quarter: 2020Q3

REPORT INFORMATION
  Report Type: Spontaneous
  Country: CN (occurrence: CN)
  Receive Date: 20200701
  Receipt Date: 20200701
  Transmission Date: 20201103
  Serious: Yes (Hospitalization)
  Sender: FDA-Public Use
  Company Number: CN-BAYER-2020-132379

PATIENT
  Age: 61 Year
  Sex: Male
  Weight: 58 kg

DRUGS (1)
  1. NEXAVAR [Suspect]
     Active Substance: SORAFENIB
     Indication: HEPATIC CANCER
     Dosage: 0.4 G, BID
     Route: 048
     Dates: start: 20200605, end: 20200623

REACTIONS (13)
  - Dermatitis bullous [Recovering/Resolving]
  - Pain of skin [Recovering/Resolving]
  - Skin ulcer [Recovering/Resolving]
  - Oral pain [Recovering/Resolving]
  - Skin swelling [Recovering/Resolving]
  - Blister [Recovering/Resolving]
  - Rhinalgia [Recovering/Resolving]
  - Tongue ulceration [Recovering/Resolving]
  - Glossodynia [Recovering/Resolving]
  - Drug eruption [Recovering/Resolving]
  - Temperature intolerance [Recovering/Resolving]
  - Pyrexia [Recovering/Resolving]
  - Erythema [Recovering/Resolving]

NARRATIVE: CASE EVENT DATE: 20200612
